FAERS Safety Report 10340013 (Version 3)
Quarter: 2014Q4

REPORT INFORMATION
  Report Type: Report from Study
  Country: JP (occurrence: JP)
  Receive Date: 20140724
  Receipt Date: 20141114
  Transmission Date: 20150528
  Serious: Yes (Death, Other)
  Sender: FDA-Public Use
  Company Number: PHHY2014JP090444

PATIENT
  Age: 88 Year
  Sex: Female

DRUGS (1)
  1. EXELON [Suspect]
     Active Substance: RIVASTIGMINE TARTRATE
     Indication: DEMENTIA ALZHEIMER^S TYPE
     Dosage: 1.9 MG, QD
     Route: 062
     Dates: start: 20121210, end: 20121220

REACTIONS (3)
  - Drug ineffective [Unknown]
  - Depressed level of consciousness [Unknown]
  - Death [Fatal]
